FAERS Safety Report 18953476 (Version 1)
Quarter: 2021Q1

REPORT INFORMATION
  Report Type: Spontaneous
  Country: US (occurrence: US)
  Receive Date: 20210301
  Receipt Date: 20210301
  Transmission Date: 20210420
  Serious: No
  Sender: FDA-Public Use
  Company Number: None

PATIENT
  Age: 39 Year
  Sex: Female
  Weight: 90 kg

DRUGS (3)
  1. DAILY MULTIVITAMIN [Concomitant]
     Active Substance: VITAMINS
  2. BOTOX [Suspect]
     Active Substance: ONABOTULINUMTOXINA
     Indication: MIGRAINE
     Dates: start: 20210219, end: 20210219
  3. IUD NOS [Concomitant]
     Active Substance: COPPER OR LEVONORGESTREL

REACTIONS (6)
  - Pain [None]
  - Muscular weakness [None]
  - Arthralgia [None]
  - Neck pain [None]
  - Injection site pruritus [None]
  - Headache [None]

NARRATIVE: CASE EVENT DATE: 20210222
